FAERS Safety Report 9725544 (Version 2)
Quarter: 2013Q4

REPORT INFORMATION
  Report Type: Spontaneous
  Country: US (occurrence: US)
  Receive Date: 20131203
  Receipt Date: 20131204
  Transmission Date: 20140711
  Serious: Yes (Other)
  Sender: FDA-Public Use
  Company Number: US-SA-2013SA125164

PATIENT
  Age: 52 Year
  Sex: Male

DRUGS (3)
  1. MULTAQ [Suspect]
     Indication: ATRIAL FIBRILLATION
     Route: 048
     Dates: end: 201111
  2. MULTAQ [Suspect]
     Indication: ATRIAL FIBRILLATION
     Route: 048
  3. ATORVASTATIN [Concomitant]
     Route: 065

REACTIONS (11)
  - Tendon rupture [Unknown]
  - Atrial fibrillation [Unknown]
  - Drug ineffective [Unknown]
  - Atrial flutter [Unknown]
  - Drug ineffective [Unknown]
  - Stress [Unknown]
  - Weight decreased [Unknown]
  - Feeling abnormal [Unknown]
  - Sleep apnoea syndrome [Unknown]
  - Drug interaction [Unknown]
  - Incorrect product storage [Unknown]
